FAERS Safety Report 5788113-3 (Version None)
Quarter: 2008Q2

REPORT INFORMATION
  Report Type: 
  Country: None (occurrence: None)
  Receive Date: 20080625
  Receipt Date: 20080620
  Transmission Date: 20081010
  Serious: Yes (Other)
  Sender: FDA-Public Use
  Company Number: US-BOEHRINGER INGELHEIM GMBH, GERMANY-2008-DE-03605GD

PATIENT
  Age: 29 Year
  Sex: Female

DRUGS (2)
  1. MOBIC [Suspect]
     Dosage: APPROX. 30 TABLETS
     Route: 048
  2. ATROPINE [Suspect]

REACTIONS (9)
  - AGITATION [None]
  - ANXIETY [None]
  - DRUG ABUSE [None]
  - DRY SKIN [None]
  - MUCOUS MEMBRANE DISORDER [None]
  - MYDRIASIS [None]
  - SINUS TACHYCARDIA [None]
  - SUICIDE ATTEMPT [None]
  - URINARY RETENTION [None]
